FAERS Safety Report 15790038 (Version 1)
Quarter: 2019Q1

REPORT INFORMATION
  Report Type: Spontaneous
  Country: CA (occurrence: CA)
  Receive Date: 20190104
  Receipt Date: 20190104
  Transmission Date: 20190417
  Serious: Yes (Life-Threatening)
  Sender: FDA-Public Use
  Company Number: CA-BAYER-2019-001382

PATIENT
  Age: 69 Year
  Sex: Female
  Weight: 48 kg

DRUGS (6)
  1. ACETYLSALICYLIC ACID({=100 MG) [Suspect]
     Active Substance: ASPIRIN
     Indication: PROPHYLAXIS
     Dosage: 81 MG, QD
  2. TYLENOL [Concomitant]
     Active Substance: ACETAMINOPHEN
  3. TOCOPHEROL [Concomitant]
     Active Substance: TOCOPHEROL
  4. ASCORBIC ACID. [Concomitant]
     Active Substance: ASCORBIC ACID
  5. GARLIC [ALLIUM SATIVUM] [Concomitant]
  6. MULTIVITAMIN [VITAMINS NOS] [Concomitant]

REACTIONS (4)
  - Gastric ulcer [Unknown]
  - Asthenia [Unknown]
  - Dizziness [Unknown]
  - Transfusion [Unknown]
